FAERS Safety Report 4443335-9 (Version None)
Quarter: 2004Q3

REPORT INFORMATION
  Report Type: 
  Country: None (occurrence: None)
  Receive Date: 20040907
  Receipt Date: 20040907
  Transmission Date: 20050211
  Serious: Yes (Other)
  Sender: FDA-Public Use
  Company Number: None

PATIENT
  Age: 56 Year
  Sex: Male
  Weight: 103.9 kg

DRUGS (4)
  1. IBUPROFEN [Suspect]
  2. PAROXETINE HCL [Concomitant]
  3. QYETIAPINE FUMARATE [Concomitant]
  4. OMEPRAZOLE [Concomitant]

REACTIONS (2)
  - PRURITUS [None]
  - RASH [None]
